FAERS Safety Report 23518924 (Version 3)
Quarter: 2024Q3

REPORT INFORMATION
  Report Type: Spontaneous
  Country: US (occurrence: US)
  Receive Date: 20240213
  Receipt Date: 20240801
  Transmission Date: 20241017
  Serious: Yes (Other)
  Sender: PFIZER
  Company Number: US-PFIZER INC-202200908310

PATIENT
  Age: 84 Year
  Sex: Female

DRUGS (4)
  1. IBRANCE [Suspect]
     Active Substance: PALBOCICLIB
     Indication: Breast cancer female
     Dosage: 100 MG, CYCLIC (21 DAYS ON, 7 DAYS OFF)
  2. IBRANCE [Suspect]
     Active Substance: PALBOCICLIB
     Dosage: 100 MG, DAILY (FOR 21 DAYS)
     Route: 048
  3. IBRANCE [Suspect]
     Active Substance: PALBOCICLIB
     Dosage: 100 MG, 1 DAILY DAYS 1-21 EVERY 28 DAYS
     Route: 048
  4. IBRANCE [Suspect]
     Active Substance: PALBOCICLIB
     Dosage: 1 TABLET ORALLY DAILY, ADMINISTER ON DAYS 1 THROUGH 21 OF A 28-DAY TREATMENT CYCLE

REACTIONS (3)
  - Neutropenia [Unknown]
  - Product dispensing error [Unknown]
  - Wrong product administered [Unknown]

NARRATIVE: CASE EVENT DATE: 20220628
